FAERS Safety Report 10306552 (Version 2)
Quarter: 2014Q3

REPORT INFORMATION
  Report Type: Spontaneous
  Country: JP (occurrence: JP)
  Receive Date: 20140715
  Receipt Date: 20140717
  Transmission Date: 20150326
  Serious: Yes (Life-Threatening, Hospitalization)
  Sender: FDA-Public Use
  Company Number: JP-TAKEDA-2014TJP009046

PATIENT
  Age: 79 Year
  Sex: Female

DRUGS (3)
  1. ROZEREM [Suspect]
     Active Substance: RAMELTEON
     Dosage: 10 DF, UNK
     Route: 048
     Dates: start: 20140707, end: 20140707
  2. ROZEREM [Suspect]
     Active Substance: RAMELTEON
     Dosage: 8 DF, UNK
     Route: 048
     Dates: start: 20140708, end: 20140708
  3. ROZEREM [Suspect]
     Active Substance: RAMELTEON
     Indication: INSOMNIA
     Dosage: UNK
     Route: 048
     Dates: end: 20140706

REACTIONS (2)
  - Respiratory depression [Recovering/Resolving]
  - Intentional overdose [Recovering/Resolving]

NARRATIVE: CASE EVENT DATE: 20140708
